FAERS Safety Report 26040675 (Version 1)
Quarter: 2025Q4

REPORT INFORMATION
  Report Type: Spontaneous
  Country: US (occurrence: None)
  Receive Date: 20251112
  Receipt Date: 20251112
  Transmission Date: 20260118
  Serious: Yes (Hospitalization)
  Sender: FDA-CTU
  Company Number: None

PATIENT
  Sex: Male

DRUGS (1)
  1. DROXIDOPA [Suspect]
     Active Substance: DROXIDOPA
     Indication: Hypotension
     Dosage: FREQUENCY : 3 TIMES A DAY;?
     Route: 048
     Dates: start: 20250822

REACTIONS (4)
  - Unresponsive to stimuli [None]
  - Loss of consciousness [None]
  - Head injury [None]
  - Eye contusion [None]
